FAERS Safety Report 8045980-0 (Version None)
Quarter: 2012Q1

REPORT INFORMATION
  Report Type: 
  Country: None (occurrence: None)
  Receive Date: 20120113
  Receipt Date: 20120103
  Transmission Date: 20120608
  Serious: Yes (Other)
  Sender: FDA-Public Use
  Company Number: US-PFIZER INC-2012001159

PATIENT
  Sex: Female

DRUGS (4)
  1. CLONIDINE [Concomitant]
     Indication: SLEEP DISORDER
     Dosage: 0.2 MG, DAILY AT NIGHT
  2. ALISKIREN/VALSARTAN [Concomitant]
     Indication: BLOOD PRESSURE ABNORMAL
     Dosage: UNK
  3. CELEBREX [Suspect]
     Indication: OSTEOARTHRITIS
     Dosage: 200 MG, DAILY
  4. OMEPRAZOLE [Concomitant]
     Indication: GASTRIC DISORDER
     Dosage: 20 MG, DAILY

REACTIONS (3)
  - ACTIVITIES OF DAILY LIVING IMPAIRED [None]
  - PAIN [None]
  - DRUG DOSE OMISSION [None]
